FAERS Safety Report 18949192 (Version 1)
Quarter: 2021Q1

REPORT INFORMATION
  Report Type: Spontaneous
  Country: FR (occurrence: FR)
  Receive Date: 20210227
  Receipt Date: 20210227
  Transmission Date: 20210420
  Serious: Yes (Other)
  Sender: FDA-Public Use
  Company Number: NVSC2021FR040421

PATIENT
  Age: 42 Year
  Sex: Female
  Weight: 45.6 kg

DRUGS (1)
  1. ANAFRANIL [Suspect]
     Active Substance: CLOMIPRAMINE HYDROCHLORIDE
     Indication: GAIT DISTURBANCE
     Dosage: 1 DF, QD
     Route: 042
     Dates: start: 20210106, end: 20210111

REACTIONS (2)
  - Administration site erythema [Not Recovered/Not Resolved]
  - Infusion site thrombosis [Not Recovered/Not Resolved]

NARRATIVE: CASE EVENT DATE: 20210111
